FAERS Safety Report 6783196-6 (Version None)
Quarter: 2010Q2

REPORT INFORMATION
  Report Type: 
  Country: None (occurrence: None)
  Receive Date: 20100617
  Receipt Date: 20100608
  Transmission Date: 20101027
  Serious: Yes (Hospitalization)
  Sender: FDA-Public Use
  Company Number: 611498

PATIENT
  Age: 56 Year
  Sex: Female

DRUGS (5)
  1. IRINOTECAN HYDROCHLORIDE [Suspect]
     Dosage: 300 MG MILLIGRAM(S), INTRAVENOUS
     Route: 042
     Dates: start: 20100119, end: 20100316
  2. (5-FU /00098801/) [Suspect]
     Dosage: 3300 MG MILLIGRAM(S), INTRAVENOUS
     Route: 042
     Dates: start: 20100119, end: 20100318
  3. (PREFOLIC /00566702/) [Concomitant]
  4. DECADRON [Concomitant]
  5. (LIMICAN) [Concomitant]

REACTIONS (7)
  - BODY TEMPERATURE DECREASED [None]
  - DECREASED APPETITE [None]
  - DIARRHOEA [None]
  - HYPOKALAEMIA [None]
  - LEUKOPENIA [None]
  - NAUSEA [None]
  - VOMITING [None]
